FAERS Safety Report 17115650 (Version 1)
Quarter: 2019Q4

REPORT INFORMATION
  Report Type: Report from Study
  Country: US (occurrence: US)
  Receive Date: 20191205
  Receipt Date: 20191205
  Transmission Date: 20200122
  Serious: Yes (Death)
  Sender: FDA-Public Use
  Company Number: US-UCBSA-2019051023

PATIENT
  Age: 82 Year
  Sex: Male

DRUGS (1)
  1. ROTIGOTINE [Suspect]
     Active Substance: ROTIGOTINE
     Indication: RESTLESS LEGS SYNDROME
     Dosage: 8 MILLIGRAM, ONCE DAILY (QD)
     Dates: end: 20191101

REACTIONS (2)
  - Intentional overdose [Unknown]
  - Death [Fatal]

NARRATIVE: CASE EVENT DATE: 20191101
